FAERS Safety Report 8513930-6 (Version None)
Quarter: 2012Q3

REPORT INFORMATION
  Report Type: 
  Country: None (occurrence: None)
  Receive Date: 20120717
  Receipt Date: 20120705
  Transmission Date: 20120928
  Serious: Yes (Other)
  Sender: FDA-Public Use
  Company Number: JP-009507513-1206USA03036

PATIENT

DRUGS (6)
  1. ZIOPTAN [Suspect]
     Indication: OPEN ANGLE GLAUCOMA
     Dosage: 2 DROPS, QD
     Route: 047
     Dates: start: 20090803, end: 20110601
  2. DORZOLAMIDE HYDROCHLORIDE [Concomitant]
     Dates: end: 20090803
  3. HYALURONATE SODIUM [Concomitant]
     Dates: end: 20100105
  4. MECOBALAMIN [Concomitant]
     Dates: start: 20100202
  5. NEOSTIGMINE METHYLSULFATE [Concomitant]
     Dates: start: 20100426, end: 20100518
  6. TIMOLOL MALEATE [Concomitant]

REACTIONS (2)
  - VISUAL ACUITY REDUCED [None]
  - VISUAL FIELD DEFECT [None]
